FAERS Safety Report 4947615-X (Version None)
Quarter: 2006Q1

REPORT INFORMATION
  Report Type: 
  Country: None (occurrence: None)
  Receive Date: 20060320
  Receipt Date: 20060307
  Transmission Date: 20060701
  Serious: Yes (Other)
  Sender: FDA-Public Use
  Company Number: KR-JNJFOC-20060301689

PATIENT
  Age: 13 Year
  Sex: Male
  Weight: 42 kg

DRUGS (3)
  1. CONCERTA OROS [Suspect]
     Route: 048
  2. CONCERTA OROS [Suspect]
     Route: 048
  3. METADATE CD [Suspect]
     Route: 048

REACTIONS (4)
  - ANOREXIA [None]
  - DEPRESSED MOOD [None]
  - INSOMNIA [None]
  - WEIGHT DECREASED [None]
